FAERS Safety Report 7932135-0 (Version None)
Quarter: 2011Q4

REPORT INFORMATION
  Report Type: 
  Country: None (occurrence: None)
  Receive Date: 20111121
  Receipt Date: 20110202
  Transmission Date: 20120403
  Serious: No
  Sender: FDA-Public Use
  Company Number: US-AMGEN-USASP2011003360

PATIENT
  Age: 35 Year
  Sex: Female

DRUGS (2)
  1. ENBREL [Suspect]
     Indication: HIDRADENITIS
     Dosage: 50 MG, QWK
     Dates: start: 20101215
  2. PREDNISONE TAB [Suspect]
     Indication: SINUSITIS

REACTIONS (5)
  - CHEST PAIN [None]
  - SINUSITIS [None]
  - RESPIRATORY TRACT CONGESTION [None]
  - COUGH [None]
  - DYSPNOEA [None]
